FAERS Safety Report 10967408 (Version 4)
Quarter: 2015Q2

REPORT INFORMATION
  Report Type: Spontaneous
  Country: FR (occurrence: FR)
  Receive Date: 20150330
  Receipt Date: 20150522
  Transmission Date: 20150821
  Serious: Yes (Hospitalization)
  Sender: FDA-Public Use
  Company Number: FR-PFIZER INC-2015103587

PATIENT
  Age: 89 Year
  Sex: Female

DRUGS (8)
  1. NEBIVOLOL [Suspect]
     Active Substance: NEBIVOLOL
     Dosage: 2.5 MG, 1X/DAY (HALF OF 5 MG TABLET) IN THE MORNING
     Route: 048
  2. DAFALGAN [Suspect]
     Active Substance: ACETAMINOPHEN
     Dosage: 1000 MG TO 2000 MG (2 TO 4 DFS), DAILY IF NEEDED
     Route: 048
  3. AMLOR [Suspect]
     Active Substance: AMLODIPINE BESYLATE
     Dosage: 5 MG, 1X/DAY (IN THE EVENING)
     Route: 048
  4. ATORVASTATIN CALCIUM. [Suspect]
     Active Substance: ATORVASTATIN CALCIUM
     Dosage: 10 MG, DAILY (IN THE EVENING)
     Route: 048
     Dates: start: 2006, end: 20150304
  5. KARDEGIC [Suspect]
     Active Substance: ASPIRIN LYSINE
     Dosage: 160 MG, 1X/DAY (IN MID-DAY)
     Route: 048
  6. HAVLANE [Suspect]
     Active Substance: LOPRAZOLAM
     Dosage: 1 MG, 1X/DAY (IN THE EVENING)
     Route: 048
  7. OLMETEC [Suspect]
     Active Substance: OLMESARTAN MEDOXOMIL
     Dosage: 10 MG, 1X/DAY (IN THE MORNING)
     Route: 048
  8. VITALOGINK [Suspect]
     Active Substance: GINKGO
     Dosage: 40 MG, 3X/DAY (MORNING, MID-DAY, EVENING)
     Route: 048

REACTIONS (1)
  - Interstitial lung disease [Recovering/Resolving]

NARRATIVE: CASE EVENT DATE: 20150227
